FAERS Safety Report 15714879 (Version 13)
Quarter: 2019Q2

REPORT INFORMATION
  Report Type: Report from Study
  Country: PE (occurrence: PE)
  Receive Date: 20181212
  Receipt Date: 20190626
  Transmission Date: 20190711
  Serious: Yes (Hospitalization)
  Sender: FDA-Public Use
  Company Number: PE-SEATTLE GENETICS-2018SGN03230

PATIENT
  Age: 32 Year
  Sex: Female

DRUGS (1)
  1. BRENTUXIMAB VEDOTIN-MPI [Suspect]
     Active Substance: BRENTUXIMAB VEDOTIN
     Indication: HODGKIN^S DISEASE
     Dosage: 90 MILLIGRAM
     Route: 042
     Dates: start: 20180405, end: 20190322

REACTIONS (20)
  - Diarrhoea [Unknown]
  - Fatigue [Unknown]
  - Somnolence [Unknown]
  - Weight decreased [Unknown]
  - Vomiting [Unknown]
  - Dizziness [Unknown]
  - Blood electrolytes decreased [Unknown]
  - Memory impairment [Unknown]
  - Respiratory disorder [Unknown]
  - Malaise [Unknown]
  - Cough [Unknown]
  - Stomatitis [Unknown]
  - Influenza [Unknown]
  - Chemotherapy [Unknown]
  - Vulvovaginal inflammation [Unknown]
  - Nausea [Unknown]
  - Irritability [Unknown]
  - Neutropenia [Unknown]
  - Pyrexia [Not Recovered/Not Resolved]
  - Asthenia [Unknown]

NARRATIVE: CASE EVENT DATE: 20181211
